FAERS Safety Report 4318984-9 (Version None)
Quarter: 2004Q1

REPORT INFORMATION
  Report Type: 
  Country: None (occurrence: None)
  Receive Date: 20040316
  Receipt Date: 20040303
  Transmission Date: 20041129
  Serious: Yes (Death)
  Sender: FDA-Public Use
  Company Number: US_0403101300

PATIENT
  Age: 71 Year
  Sex: Female

DRUGS (2)
  1. GEMZAR [Suspect]
     Indication: BREAST CANCER
     Dates: start: 20040211, end: 20040218
  2. PACLITAXEL [Concomitant]

REACTIONS (1)
  - THERAPEUTIC AGENT TOXICITY [None]
